FAERS Safety Report 23994449 (Version 1)
Quarter: 2024Q2

REPORT INFORMATION
  Report Type: Spontaneous
  Country: PH (occurrence: PH)
  Receive Date: 20240620
  Receipt Date: 20240620
  Transmission Date: 20240716
  Serious: Yes (Hospitalization)
  Sender: FDA-Public Use
  Company Number: PH-GALDERMA-PH2024009569

PATIENT

DRUGS (2)
  1. EPIDUO [Suspect]
     Active Substance: ADAPALENE\BENZOYL PEROXIDE
     Indication: Acne
     Dosage: 1 DOSAGE FORM, APPLIED ON FACE
     Route: 061
     Dates: start: 20240405, end: 20240406
  2. DOXYCYCLINE HYCLATE [Concomitant]
     Active Substance: DOXYCYCLINE HYCLATE
     Indication: Acne
     Dosage: 100 MILLIGRAM
     Route: 048
     Dates: start: 20240405, end: 20240406

REACTIONS (3)
  - Soft tissue swelling [Recovered/Resolved]
  - Swelling of eyelid [Recovered/Resolved]
  - Dyspnoea [Recovered/Resolved]

NARRATIVE: CASE EVENT DATE: 20240406
